FAERS Safety Report 23352101 (Version 1)
Quarter: 2023Q4

REPORT INFORMATION
  Report Type: Spontaneous
  Country: US (occurrence: None)
  Receive Date: 20231229
  Receipt Date: 20231229
  Transmission Date: 20240109
  Serious: Yes (Other)
  Sender: FDA-Public Use
  Company Number: None

PATIENT
  Age: 64 Year
  Sex: Female
  Weight: 81 kg

DRUGS (1)
  1. REMICADE [Suspect]
     Active Substance: INFLIXIMAB

REACTIONS (11)
  - Infusion related reaction [None]
  - Feeling hot [None]
  - Blood pressure decreased [None]
  - Heart rate decreased [None]
  - Arthralgia [None]
  - Musculoskeletal disorder [None]
  - Peripheral swelling [None]
  - Joint swelling [None]
  - Arthropathy [None]
  - Feeling hot [None]
  - Erythema [None]

NARRATIVE: CASE EVENT DATE: 20231228
